FAERS Safety Report 12625434 (Version 1)
Quarter: 2016Q3

REPORT INFORMATION
  Report Type: Spontaneous
  Country: US (occurrence: US)
  Receive Date: 20160805
  Receipt Date: 20160805
  Transmission Date: 20161109
  Serious: Yes (Other)
  Sender: FDA-Public Use
  Company Number: US-BAYER-2016-148053

PATIENT
  Sex: Female

DRUGS (1)
  1. BAYER GENUINE ASPIRIN [Suspect]
     Active Substance: ASPIRIN

REACTIONS (5)
  - Lip swelling [None]
  - Drug hypersensitivity [None]
  - Haemorrhagic anaemia [None]
  - Gastric ulcer haemorrhage [None]
  - Loss of consciousness [None]
